FAERS Safety Report 13758523 (Version 2)
Quarter: 2017Q3

REPORT INFORMATION
  Report Type: Report from Study
  Country: US (occurrence: US)
  Receive Date: 20170717
  Receipt Date: 20170724
  Transmission Date: 20171127
  Serious: No
  Sender: FDA-Public Use
  Company Number: US-AMGEN-USASL2017104716

PATIENT
  Age: 60 Year
  Sex: Female

DRUGS (7)
  1. HYDROCODONE [Concomitant]
     Active Substance: HYDROCODONE
     Indication: SPINAL DISORDER
     Dosage: UNK
  2. ENBREL [Suspect]
     Active Substance: ETANERCEPT
     Indication: RHEUMATOID ARTHRITIS
     Dosage: UNK
     Route: 065
     Dates: start: 20170530
  3. TYLENOL [Concomitant]
     Active Substance: ACETAMINOPHEN
     Dosage: UNK
  4. OMEPRAZOLE. [Concomitant]
     Active Substance: OMEPRAZOLE
     Indication: GASTROOESOPHAGEAL REFLUX DISEASE
     Dosage: UNK
  5. RELAFEN [Concomitant]
     Active Substance: NABUMETONE
     Indication: MUSCULOSKELETAL DISCOMFORT
     Dosage: UNK
  6. MOTRIN [Concomitant]
     Active Substance: IBUPROFEN
     Dosage: UNK
  7. LOSARTAN. [Concomitant]
     Active Substance: LOSARTAN
     Indication: HYPERTENSION
     Dosage: UNK

REACTIONS (2)
  - Asthma [Unknown]
  - Rash pruritic [Unknown]

NARRATIVE: CASE EVENT DATE: 201706
